FAERS Safety Report 4613832-1 (Version None)
Quarter: 2005Q1

REPORT INFORMATION
  Report Type: 
  Country: None (occurrence: None)
  Receive Date: 20050321
  Receipt Date: 20050308
  Transmission Date: 20050727
  Serious: Yes (Hospitalization)
  Sender: FDA-Public Use
  Company Number: JP-MERCK-0503USA01658

PATIENT
  Age: 68 Year
  Sex: Male

DRUGS (2)
  1. DECADRON [Suspect]
     Indication: MULTIPLE MYELOMA
     Route: 048
     Dates: start: 20030612, end: 20030615
  2. THALIDOMIDE [Suspect]
     Indication: MULTIPLE MYELOMA
     Route: 065
     Dates: start: 20030612, end: 20030615

REACTIONS (2)
  - RENAL FAILURE [None]
  - TUMOUR LYSIS SYNDROME [None]
